FAERS Safety Report 5238541-X (Version None)
Quarter: 2007Q1

REPORT INFORMATION
  Report Type: 
  Country: None (occurrence: None)
  Receive Date: 20070215
  Receipt Date: 20070212
  Transmission Date: 20070707
  Serious: Yes (Hospitalization)
  Sender: FDA-Public Use
  Company Number: IT-GLAXOSMITHKLINE-B0458158A

PATIENT
  Age: 28 Year
  Sex: Male

DRUGS (2)
  1. AUGMENTIN '125' [Suspect]
     Indication: TRACHEITIS
     Dosage: 2MG PER DAY
     Route: 050
     Dates: start: 20070205, end: 20070207
  2. GOLA ACTION [Suspect]
     Indication: PHARYNGITIS
     Route: 061

REACTIONS (2)
  - HYPERAEMIA [None]
  - PALATAL OEDEMA [None]
